FAERS Safety Report 10026387 (Version 2)
Quarter: 2014Q1

REPORT INFORMATION
  Report Type: Spontaneous
  Country: US (occurrence: US)
  Receive Date: 20140321
  Receipt Date: 20140321
  Transmission Date: 20141002
  Serious: No
  Sender: FDA-Public Use
  Company Number: US-ALLERGAN-1400094US

PATIENT
  Age: 65 Year
  Sex: Female

DRUGS (1)
  1. LUMIGAN [Suspect]
     Indication: GLAUCOMA
     Dosage: 2 GTT, QHS
     Route: 047
     Dates: end: 20131213

REACTIONS (4)
  - Intraocular pressure increased [Recovered/Resolved]
  - Diplopia [Recovered/Resolved]
  - Eye infection viral [Recovered/Resolved]
  - Vision blurred [Recovered/Resolved]
